FAERS Safety Report 9870489 (Version 1)
Quarter: 2014Q1

REPORT INFORMATION
  Report Type: Spontaneous
  Country: US (occurrence: None)
  Receive Date: 20140204
  Receipt Date: 20140204
  Transmission Date: 20141002
  Serious: Yes (Life-Threatening, Hospitalization)
  Sender: FDA-Public Use
  Company Number: None

PATIENT
  Age: 31 Year
  Sex: Male
  Weight: 127.01 kg

DRUGS (2)
  1. ANDROGEL 1% [Suspect]
     Indication: FATIGUE
     Dosage: RUB ON ARM/SHOT IN BUTT ?WEEKLY?APPLIED TO A SURGACE USUALLY THE SKIN??5-6 MTHS
     Route: 061
  2. ANDROGEL 1% [Suspect]
     Indication: WEIGHT CONTROL
     Dosage: RUB ON ARM/SHOT IN BUTT ?WEEKLY?APPLIED TO A SURGACE USUALLY THE SKIN??5-6 MTHS
     Route: 061

REACTIONS (5)
  - Drug ineffective [None]
  - Pain in extremity [None]
  - Local swelling [None]
  - Deep vein thrombosis [None]
  - Pulmonary embolism [None]
